FAERS Safety Report 4764993-5 (Version None)
Quarter: 2005Q3

REPORT INFORMATION
  Report Type: 
  Country: None (occurrence: None)
  Receive Date: 20050909
  Receipt Date: 20050831
  Transmission Date: 20060218
  Serious: Yes (Life-Threatening, Hospitalization, Other)
  Sender: FDA-Public Use
  Company Number: 200517725GDDC

PATIENT
  Age: 62 Year
  Sex: Male
  Weight: 58 kg

DRUGS (4)
  1. AMARYL [Suspect]
     Indication: DIABETES MELLITUS
     Route: 048
     Dates: start: 20031105, end: 20050411
  2. CLARITIN [Suspect]
     Indication: SEASONAL ALLERGY
     Route: 048
     Dates: start: 20050310, end: 20050411
  3. NU-LOTAN [Suspect]
     Indication: HYPERTENSION
     Route: 048
     Dates: start: 20050310, end: 20050404
  4. OMEPRAZOLE [Concomitant]
     Indication: HIATUS HERNIA
     Route: 048
     Dates: start: 20050410, end: 20050411

REACTIONS (12)
  - ALANINE AMINOTRANSFERASE INCREASED [None]
  - ASPARTATE AMINOTRANSFERASE INCREASED [None]
  - BLOOD ALKALINE PHOSPHATASE INCREASED [None]
  - BLOOD LACTATE DEHYDROGENASE INCREASED [None]
  - BLOOD ZINC ABNORMAL [None]
  - CONTUSION [None]
  - INFECTION [None]
  - JAUNDICE [None]
  - LIVER DISORDER [None]
  - LYMPHOCYTE STIMULATION TEST POSITIVE [None]
  - PROTHROMBIN LEVEL INCREASED [None]
  - PROTHROMBIN TIME SHORTENED [None]
